FAERS Safety Report 10393616 (Version 1)
Quarter: 2014Q3

REPORT INFORMATION
  Report Type: Other
  Country: GB (occurrence: GB)
  Receive Date: 20140819
  Receipt Date: 20140819
  Transmission Date: 20150326
  Serious: Yes (Disabling)
  Sender: FDA-Public Use
  Company Number: GB-MYLAN-2014M1000695

PATIENT

DRUGS (2)
  1. PRAMIPEXOLE [Suspect]
     Active Substance: PRAMIPEXOLE
     Dosage: PRESCRIBED 1MG THREE TIMES A DAY BUT WAS SELF-MEDICATING EXTRA DOSES.
     Route: 048
     Dates: start: 20130918, end: 20140202
  2. STALEVO [Concomitant]
     Active Substance: CARBIDOPA\ENTACAPONE\LEVODOPA
     Dosage: UNK

REACTIONS (2)
  - Voyeurism [Recovered/Resolved]
  - Intentional product misuse [Unknown]

NARRATIVE: CASE EVENT DATE: 20130918
